FAERS Safety Report 10075431 (Version 2)
Quarter: 2014Q2

REPORT INFORMATION
  Report Type: Report from Study
  Country: US (occurrence: US)
  Receive Date: 20140414
  Receipt Date: 20140513
  Transmission Date: 20141212
  Serious: Yes (Hospitalization)
  Sender: FDA-Public Use
  Company Number: US-ROCHE-1375919

PATIENT
  Sex: Female
  Weight: 76.27 kg

DRUGS (8)
  1. AVASTIN [Suspect]
     Indication: GLIOBLASTOMA MULTIFORME
     Route: 042
     Dates: start: 201401
  2. PREDNISONE [Suspect]
     Indication: ANKYLOSING SPONDYLITIS
     Route: 048
  3. LEVOTHYROXINE [Concomitant]
     Indication: HYPOTHYROIDISM
     Route: 048
  4. LISINOPRIL [Concomitant]
     Indication: HYPERTENSION
     Route: 048
  5. VESICARE [Concomitant]
     Dosage: AS NEEDED
     Route: 048
  6. ZANAFLEX [Concomitant]
     Indication: ANKYLOSING SPONDYLITIS
     Dosage: AS NEEDED
     Route: 048
  7. IBUPROFEN [Concomitant]
     Indication: PAIN
     Dosage: AS NEEDED
     Route: 065
  8. AMBIEN [Concomitant]
     Dosage: AT NIGHT
     Route: 065

REACTIONS (10)
  - Ulcer haemorrhage [Unknown]
  - Costochondritis [Unknown]
  - Nausea [Not Recovered/Not Resolved]
  - Aphasia [Not Recovered/Not Resolved]
  - Ear pain [Not Recovered/Not Resolved]
  - Hearing impaired [Not Recovered/Not Resolved]
  - Somnolence [Not Recovered/Not Resolved]
  - Alopecia [Not Recovered/Not Resolved]
  - Abdominal pain upper [Not Recovered/Not Resolved]
  - Drug ineffective [Unknown]
